FAERS Safety Report 9115125 (Version 1)
Quarter: 2013Q1

REPORT INFORMATION
  Report Type: Spontaneous
  Country: US (occurrence: US)
  Receive Date: 20130225
  Receipt Date: 20130225
  Transmission Date: 20140127
  Serious: No
  Sender: FDA-Public Use
  Company Number: US-COVIDIEN/TYCO HEALTHCARE/MALLINCKRODT-T201103030

PATIENT
  Age: 15 None
  Sex: Male

DRUGS (1)
  1. GABLOFEN [Suspect]
     Indication: PRODUCT USED FOR UNKNOWN INDICATION
     Route: 037

REACTIONS (4)
  - Irritability [Recovered/Resolved]
  - Head banging [Recovered/Resolved]
  - Hypertonia [Recovered/Resolved]
  - Device malfunction [Unknown]
